FAERS Safety Report 8923334 (Version 8)
Quarter: 2014Q2

REPORT INFORMATION
  Report Type: Spontaneous
  Country: US (occurrence: US)
  Receive Date: 20121123
  Receipt Date: 20140509
  Transmission Date: 20141212
  Serious: Yes (Hospitalization, Other)
  Sender: FDA-Public Use
  Company Number: US-JNJFOC-20121109214

PATIENT
  Age: 29 Year
  Sex: Female
  Weight: 63.5 kg

DRUGS (6)
  1. EXTRA STRENGTH TYLENOL [Suspect]
     Indication: VOMITING
     Route: 048
     Dates: start: 20110322, end: 20110326
  2. EXTRA STRENGTH TYLENOL [Suspect]
     Indication: BACK PAIN
     Route: 048
     Dates: start: 20110322, end: 20110326
  3. TYLENOL REGULAR STRENGTH [Concomitant]
     Indication: PYREXIA
  4. TYLENOL REGULAR STRENGTH [Concomitant]
     Indication: PAIN
  5. NYQUIL [Concomitant]
     Indication: PAIN
     Route: 065
  6. NYQUIL [Concomitant]
     Indication: INFLUENZA
     Route: 065

REACTIONS (6)
  - Suicide attempt [Unknown]
  - Acute hepatic failure [Recovering/Resolving]
  - Renal failure acute [Recovered/Resolved]
  - Hypokalaemia [Recovered/Resolved]
  - Hypophosphataemia [Recovered/Resolved]
  - Intentional overdose [Unknown]
